FAERS Safety Report 12565624 (Version 1)
Quarter: 2016Q3

REPORT INFORMATION
  Report Type: Spontaneous
  Country: US (occurrence: US)
  Receive Date: 20160718
  Receipt Date: 20160718
  Transmission Date: 20161109
  Serious: No
  Sender: FDA-Public Use
  Company Number: US-BAUSCH-BL-2016-004873

PATIENT
  Age: 80 Year
  Sex: Male

DRUGS (2)
  1. DTP [Concomitant]
     Indication: PRODUCT USED FOR UNKNOWN INDICATION
  2. BESIVANCE [Suspect]
     Active Substance: BESIFLOXACIN
     Indication: INFECTION
     Dosage: FOUR DROPS DAILY IN THE RIGHT EYE
     Route: 047
     Dates: start: 20160222

REACTIONS (1)
  - Incorrect dose administered [Unknown]

NARRATIVE: CASE EVENT DATE: 201602
